FAERS Safety Report 13343530 (Version 4)
Quarter: 2017Q2

REPORT INFORMATION
  Report Type: Spontaneous
  Country: US (occurrence: US)
  Receive Date: 20170316
  Receipt Date: 20170621
  Transmission Date: 20170830
  Serious: Yes (Hospitalization, Other)
  Sender: FDA-Public Use
  Company Number: US-009507513-1703USA006492

PATIENT
  Sex: Female
  Weight: 93.06 kg

DRUGS (4)
  1. NUVARING [Suspect]
     Active Substance: ETHINYL ESTRADIOL\ETONOGESTREL
     Dosage: UNK UNK, UNKNOWN
     Route: 067
     Dates: start: 2009, end: 20140321
  2. NUVARING [Suspect]
     Active Substance: ETHINYL ESTRADIOL\ETONOGESTREL
     Indication: CONTRACEPTION
     Dosage: UNK UNK, UNKNOWN
     Route: 067
     Dates: start: 2009, end: 20140321
  3. NUVARING [Suspect]
     Active Substance: ETHINYL ESTRADIOL\ETONOGESTREL
     Dosage: UNK UNK, UNKNOWN
     Route: 067
     Dates: start: 2009, end: 20140321
  4. NUVARING [Suspect]
     Active Substance: ETHINYL ESTRADIOL\ETONOGESTREL
     Dosage: UNK
     Route: 067
     Dates: start: 20090401

REACTIONS (12)
  - Abortion spontaneous [Recovered/Resolved]
  - Thrombosis [Unknown]
  - Thrombosis [Unknown]
  - Swelling [Unknown]
  - Polycystic ovaries [Unknown]
  - Maternal exposure before pregnancy [Recovered/Resolved]
  - Pulmonary embolism [Unknown]
  - Deep vein thrombosis [Unknown]
  - Obesity [Unknown]
  - Anxiety [Unknown]
  - Cholecystectomy [Unknown]
  - Right ventricular failure [Unknown]

NARRATIVE: CASE EVENT DATE: 2013
